FAERS Safety Report 7070272-6 (Version None)
Quarter: 2010Q4

REPORT INFORMATION
  Report Type: 
  Country: None (occurrence: None)
  Receive Date: 20101028
  Receipt Date: 20101011
  Transmission Date: 20110411
  Serious: No
  Sender: FDA-Public Use
  Company Number: US-WYE-H18157210

PATIENT
  Sex: Male
  Weight: 79.45 kg

DRUGS (5)
  1. PROTONIX [Suspect]
     Indication: DYSPEPSIA
     Route: 048
     Dates: start: 20101005
  2. PROTONIX [Suspect]
     Indication: FLATULENCE
  3. BENICAR [Concomitant]
  4. IMITREX [Concomitant]
  5. PRIMIDONE [Concomitant]

REACTIONS (3)
  - ABNORMAL FAECES [None]
  - FOOD INTERACTION [None]
  - POLLAKIURIA [None]
